FAERS Safety Report 25483453 (Version 1)
Quarter: 2025Q2

REPORT INFORMATION
  Report Type: Spontaneous
  Country: ET (occurrence: ET)
  Receive Date: 20250626
  Receipt Date: 20250626
  Transmission Date: 20250717
  Serious: Yes (Hospitalization, Other)
  Sender: AUROBINDO
  Company Number: ET-MLMSERVICE-20250530-PI525035-00053-1

PATIENT
  Age: 7 Month
  Sex: Female

DRUGS (23)
  1. CEFTRIAXONE [Suspect]
     Active Substance: CEFTRIAXONE
     Indication: Pyrexia
     Route: 065
  2. CEFTAZIDIME [Suspect]
     Active Substance: CEFTAZIDIME
     Indication: Pneumonia
     Route: 065
  3. CEFTAZIDIME [Suspect]
     Active Substance: CEFTAZIDIME
     Indication: Rickets
  4. CEFTAZIDIME [Suspect]
     Active Substance: CEFTAZIDIME
     Indication: Malaria
  5. CEFEPIME [Suspect]
     Active Substance: CEFEPIME HYDROCHLORIDE
     Indication: Pneumonia
     Route: 065
  6. CEFEPIME [Suspect]
     Active Substance: CEFEPIME HYDROCHLORIDE
     Indication: Rickets
  7. CEFEPIME [Suspect]
     Active Substance: CEFEPIME HYDROCHLORIDE
     Indication: Malaria
  8. CIPROFLOXACIN [Suspect]
     Active Substance: CIPROFLOXACIN
     Indication: Malaria
     Route: 065
  9. CIPROFLOXACIN [Suspect]
     Active Substance: CIPROFLOXACIN
     Indication: Pneumonia
  10. CIPROFLOXACIN [Suspect]
     Active Substance: CIPROFLOXACIN
     Indication: Rickets
  11. MEROPENEM [Suspect]
     Active Substance: MEROPENEM
     Indication: Pneumonia
     Route: 065
  12. MEROPENEM [Suspect]
     Active Substance: MEROPENEM
     Indication: Rickets
  13. MEROPENEM [Suspect]
     Active Substance: MEROPENEM
     Indication: Malaria
  14. AMPICILLIN [Suspect]
     Active Substance: AMPICILLIN
     Indication: Pyrexia
     Route: 065
  15. VANCOMYCIN [Suspect]
     Active Substance: VANCOMYCIN
     Indication: Pneumonia
     Route: 065
  16. VANCOMYCIN [Suspect]
     Active Substance: VANCOMYCIN
     Indication: Rickets
     Route: 065
  17. VANCOMYCIN [Suspect]
     Active Substance: VANCOMYCIN
     Indication: Malaria
  18. ARTESUNATE [Suspect]
     Active Substance: ARTESUNATE
     Indication: Pneumonia
     Route: 065
  19. ARTESUNATE [Suspect]
     Active Substance: ARTESUNATE
     Indication: Rickets
  20. ARTESUNATE [Suspect]
     Active Substance: ARTESUNATE
     Indication: Malaria
  21. VITAMIN D [Concomitant]
     Active Substance: VITAMIN D NOS
     Indication: Pneumonia
     Route: 065
  22. VITAMIN D [Concomitant]
     Active Substance: VITAMIN D NOS
     Indication: Rickets
  23. VITAMIN D [Concomitant]
     Active Substance: VITAMIN D NOS
     Indication: Malaria

REACTIONS (7)
  - Fungaemia [Recovered/Resolved]
  - Respiratory distress [Recovered/Resolved]
  - Diarrhoea [Recovered/Resolved]
  - Cough [Recovered/Resolved]
  - Fungal infection [Recovered/Resolved]
  - Vomiting [Recovered/Resolved]
  - Drug ineffective [Unknown]
